FAERS Safety Report 6940262-X (Version None)
Quarter: 2010Q3

REPORT INFORMATION
  Report Type: 
  Country: None (occurrence: None)
  Receive Date: 20100825
  Receipt Date: 20100809
  Transmission Date: 20110219
  Serious: Yes (Other)
  Sender: FDA-Public Use
  Company Number: US-SANOFI-AVENTIS-2010SA048175

PATIENT
  Sex: Female

DRUGS (7)
  1. PLAVIX [Suspect]
     Route: 048
  2. COZAAR [Concomitant]
  3. NEXIUM [Concomitant]
  4. LIPITOR [Concomitant]
  5. IPRATROPIUM BROMIDE/SALBUTAMOL SULFATE [Concomitant]
  6. VITAMINS [Concomitant]
  7. MULTI-VITAMINS [Concomitant]

REACTIONS (3)
  - CATARACT [None]
  - CERUMEN IMPACTION [None]
  - VISUAL IMPAIRMENT [None]
